FAERS Safety Report 9516862 (Version 1)
Quarter: 2013Q1

REPORT INFORMATION
  Report Type: Spontaneous
  Country: US (occurrence: None)
  Receive Date: 20130305
  Receipt Date: 20130305
  Transmission Date: 20140127
  Serious: Yes (Hospitalization)
  Sender: FDA-Public Use
  Company Number: 163-21880-12011274

PATIENT
  Age: 46 Year
  Sex: Male
  Weight: 71.22 kg

DRUGS (23)
  1. REVLIMID [Suspect]
     Indication: PLASMA CELL MYELOMA
     Route: 048
     Dates: start: 201009
  2. PHOSLO (CALCIUM ACETATE) [Concomitant]
  3. FUROSEMIDE (FUROSEMIDE) [Concomitant]
  4. COZAAR (LOSARTAN POTASSIUM) [Concomitant]
  5. LANTUS (INSULIN GLARGINE) [Concomitant]
  6. ALAVERT (LORATADINE) [Concomitant]
  7. NOVOLOG (INSULIN ASPART) [Concomitant]
  8. AMLODIPINE (AMLODIPINE) [Concomitant]
  9. INSULIN (INSULIN) [Concomitant]
  10. VITAMIN D (ERGOCALCIFEROL) [Concomitant]
  11. ACYCLOVIR (ACICLOVIR) [Concomitant]
  12. CIPRODEX [Concomitant]
  13. NASOCORT (BUDESONIDE) [Concomitant]
  14. CIPRO (CIPOROFLOXACIN) [Concomitant]
  15. FLONASE (FLUTICASONE PROPIONATE) [Concomitant]
  16. DEXAMETHASONE (DEXAMETHASONE) [Concomitant]
  17. PERCOCET (OXYCOCET) [Concomitant]
  18. AMBIEN (ZOLPIDEM TARTRATE) [Concomitant]
  19. VIAGRA (SILDENAFIL CITRATE) [Concomitant]
  20. PRILOSEC [Concomitant]
  21. MAGIC MOUTHWASH (STOMATOLOGICALS, MOUTH PREPARATIONS) [Concomitant]
  22. ALOCORT (HYDROCORTISONE) [Concomitant]
  23. AMITRIPTYLINE (AMITRIPTYLINE) [Concomitant]

REACTIONS (2)
  - Cellulitis [None]
  - Herpes zoster [None]
